FAERS Safety Report 4389502-4 (Version None)
Quarter: 2004Q3

REPORT INFORMATION
  Report Type: 
  Country: None (occurrence: None)
  Receive Date: 20040702
  Receipt Date: 20040608
  Transmission Date: 20050211
  Serious: Yes (Other)
  Sender: FDA-Public Use
  Company Number: ES-GLAXOSMITHKLINE-B0335441A

PATIENT
  Age: 38 Year
  Sex: Female
  Weight: 65 kg

DRUGS (1)
  1. ZYNTABAC [Suspect]
     Route: 048
     Dates: start: 20040518, end: 20040601

REACTIONS (6)
  - DEPRESSION [None]
  - DRY MOUTH [None]
  - FEAR [None]
  - HALLUCINATION, AUDITORY [None]
  - INSOMNIA [None]
  - NERVOUSNESS [None]
